FAERS Safety Report 8450642-1 (Version None)
Quarter: 2012Q2

REPORT INFORMATION
  Report Type: 
  Country: None (occurrence: None)
  Receive Date: 20120620
  Receipt Date: 20120614
  Transmission Date: 20120825
  Serious: Yes (Other)
  Sender: FDA-Public Use
  Company Number: PHHY2012BR051630

PATIENT
  Sex: Male

DRUGS (3)
  1. DIOVAN [Suspect]
     Dosage: 160 MG,
  2. OMEPRAZOLE [Suspect]
  3. ALPRAZOLAM [Suspect]
     Dosage: 0.25 MG, UNK

REACTIONS (2)
  - CEREBROVASCULAR ACCIDENT [None]
  - TONGUE DISORDER [None]
